FAERS Safety Report 13143710 (Version 2)
Quarter: 2017Q1

REPORT INFORMATION
  Report Type: Spontaneous
  Country: US (occurrence: US)
  Receive Date: 20170124
  Receipt Date: 20170302
  Transmission Date: 20170428
  Serious: Yes (Other)
  Sender: FDA-Public Use
  Company Number: US-BAYER-2017-011825

PATIENT

DRUGS (1)
  1. GADAVIST [Suspect]
     Active Substance: GADOBUTROL
     Dosage: UNK, ONCE
     Dates: start: 20170111, end: 20170111

REACTIONS (4)
  - Nausea [None]
  - Face oedema [None]
  - Respiratory distress [None]
  - Vomiting [None]

NARRATIVE: CASE EVENT DATE: 20170111
